FAERS Safety Report 7289876-0 (Version None)
Quarter: 2011Q1

REPORT INFORMATION
  Report Type: 
  Country: None (occurrence: None)
  Receive Date: 20110126
  Receipt Date: 20101231
  Transmission Date: 20110831
  Serious: Yes (Death)
  Sender: FDA-Public Use
  Company Number: AUR-APL-2011-00052

PATIENT
  Age: 80 Year
  Sex: Male

DRUGS (5)
  1. ALPRAZOLAM [Suspect]
     Dosage: ORAL
     Route: 048
  2. LOVASTATIN [Suspect]
     Dosage: ORAL
     Route: 048
  3. ENALAPRIL MALEATE [Suspect]
     Dosage: ORAL
     Route: 048
  4. PAROXETINE [Suspect]
     Dosage: ORAL
     Route: 048
  5. AMLODIPINE BESYLATE [Suspect]
     Dosage: ORAL
     Route: 048

REACTIONS (3)
  - INTENTIONAL DRUG MISUSE [None]
  - TOXICITY TO VARIOUS AGENTS [None]
  - COMPLETED SUICIDE [None]
